FAERS Safety Report 16361595 (Version 2)
Quarter: 2019Q2

REPORT INFORMATION
  Report Type: Spontaneous
  Country: US (occurrence: US)
  Receive Date: 20190528
  Receipt Date: 20190610
  Transmission Date: 20190711
  Serious: Yes (Other)
  Sender: FDA-Public Use
  Company Number: US-PFIZER INC-2019220723

PATIENT
  Age: 75 Year
  Sex: Female
  Weight: 81.63 kg

DRUGS (3)
  1. XELJANZ XR [Suspect]
     Active Substance: TOFACITINIB CITRATE
     Indication: ARTHRITIS
     Dosage: 11 MG, DAILY
     Route: 048
     Dates: end: 20190527
  2. XELJANZ XR [Suspect]
     Active Substance: TOFACITINIB CITRATE
     Indication: SYSTEMIC LUPUS ERYTHEMATOSUS
  3. XELJANZ XR [Suspect]
     Active Substance: TOFACITINIB CITRATE
     Indication: RHEUMATOID ARTHRITIS

REACTIONS (9)
  - Loss of consciousness [Recovered/Resolved]
  - Breast pain [Not Recovered/Not Resolved]
  - Joint swelling [Unknown]
  - Pulmonary pain [Recovering/Resolving]
  - Breast discomfort [Unknown]
  - Dry mouth [Unknown]
  - Dyspnoea [Unknown]
  - Pain [Recovering/Resolving]
  - Chest pain [Recovering/Resolving]

NARRATIVE: CASE EVENT DATE: 20190527
